FAERS Safety Report 7634460-X (Version None)
Quarter: 2011Q3

REPORT INFORMATION
  Report Type: 
  Country: None (occurrence: None)
  Receive Date: 20110725
  Receipt Date: 20110715
  Transmission Date: 20111222
  Serious: Yes (Hospitalization)
  Sender: FDA-Public Use
  Company Number: PHHO2011GB11062

PATIENT
  Sex: Male

DRUGS (3)
  1. TKI258 [Suspect]
     Indication: RENAL CANCER METASTATIC
     Dosage: 200 MG
     Route: 048
     Dates: start: 20110610, end: 20110623
  2. AFINITOR [Suspect]
     Indication: RENAL CANCER METASTATIC
     Dosage: 5 MG
     Route: 048
     Dates: start: 20110610, end: 20110623
  3. AMLODIPINE [Concomitant]
     Indication: HYPERTENSION
     Dosage: UNK
     Dates: start: 20110103

REACTIONS (2)
  - PALMAR-PLANTAR ERYTHRODYSAESTHESIA SYNDROME [None]
  - HYPOTENSION [None]
